FAERS Safety Report 18110036 (Version 1)
Quarter: 2020Q3

REPORT INFORMATION
  Report Type: Spontaneous
  Country: CA (occurrence: CA)
  Receive Date: 20200804
  Receipt Date: 20200804
  Transmission Date: 20201103
  Serious: Yes (Hospitalization)
  Sender: FDA-Public Use
  Company Number: CA-ALLERGAN-2027881US

PATIENT
  Sex: Female

DRUGS (1)
  1. DAPSONE UNK [Suspect]
     Active Substance: DAPSONE
     Indication: LINEAR IGA DISEASE
     Route: 065

REACTIONS (2)
  - Off label use [Unknown]
  - Haemolytic anaemia [Unknown]
